FAERS Safety Report 6879180-4 (Version None)
Quarter: 2010Q3

REPORT INFORMATION
  Report Type: 
  Country: None (occurrence: None)
  Receive Date: 20100728
  Receipt Date: 20100719
  Transmission Date: 20110219
  Serious: Yes (Hospitalization, Other)
  Sender: FDA-Public Use
  Company Number: AT-ABBOTT-10P-009-0641719-00

PATIENT
  Sex: Male
  Weight: 80 kg

DRUGS (2)
  1. HUMIRA [Suspect]
     Indication: PSORIASIS
     Dates: start: 20090720, end: 20091119
  2. HUMIRA [Suspect]
     Dates: start: 20091206, end: 20100308

REACTIONS (4)
  - ARTHRALGIA [None]
  - ARTHROSCOPY [None]
  - LIGAMENT RUPTURE [None]
  - MOBILITY DECREASED [None]
